FAERS Safety Report 6741092-4 (Version None)
Quarter: 2010Q2

REPORT INFORMATION
  Report Type: 
  Country: None (occurrence: None)
  Receive Date: 20100525
  Receipt Date: 20100525
  Transmission Date: 20101027
  Serious: Yes (Hospitalization, Other)
  Sender: FDA-Public Use
  Company Number: None

PATIENT
  Age: 30 Year
  Sex: Female
  Weight: 89.8122 kg

DRUGS (4)
  1. NUVARING [Suspect]
     Indication: CONTRACEPTION
     Dates: start: 20100416, end: 20100507
  2. NUVARING [Suspect]
     Indication: MENSTRUATION IRREGULAR
     Dates: start: 20100416, end: 20100507
  3. NUVARING [Suspect]
     Indication: CONTRACEPTION
     Dates: start: 20100519, end: 20100525
  4. NUVARING [Suspect]
     Indication: MENSTRUATION IRREGULAR
     Dates: start: 20100519, end: 20100525

REACTIONS (10)
  - DIZZINESS [None]
  - DYSPHAGIA [None]
  - DYSPNOEA [None]
  - HYPOKALAEMIA [None]
  - INSOMNIA [None]
  - LOSS OF CONSCIOUSNESS [None]
  - PALPITATIONS [None]
  - PANCREATITIS [None]
  - PANIC ATTACK [None]
  - VISION BLURRED [None]
